FAERS Safety Report 22242227 (Version 7)
Quarter: 2023Q2

REPORT INFORMATION
  Report Type: Spontaneous
  Country: US (occurrence: US)
  Receive Date: 20230422
  Receipt Date: 20230602
  Transmission Date: 20230721
  Serious: Yes (Hospitalization)
  Sender: FDA-Public Use
  Company Number: US-UNITED THERAPEUTICS-UNT-2023-010925

PATIENT
  Age: 80 Year
  Sex: Female
  Weight: 44.444 kg

DRUGS (9)
  1. TYVASO DPI [Suspect]
     Active Substance: TREPROSTINIL
     Indication: Pulmonary arterial hypertension
     Dosage: 16 ?G, QID
     Dates: start: 202304
  2. TYVASO DPI [Suspect]
     Active Substance: TREPROSTINIL
     Dosage: 32 ?G, QID
     Dates: start: 20230419, end: 20230423
  3. TYVASO DPI [Suspect]
     Active Substance: TREPROSTINIL
     Dosage: 16 ?G, QID
     Dates: start: 20230423
  4. TYVASO DPI [Suspect]
     Active Substance: TREPROSTINIL
     Dosage: UNK
     Dates: start: 20230405
  5. TYVASO DPI [Suspect]
     Active Substance: TREPROSTINIL
     Indication: Pulmonary arterial hypertension
     Dosage: UNK
  6. TYVASO DPI [Suspect]
     Active Substance: TREPROSTINIL
     Dosage: UNK
  7. TYVASO DPI [Suspect]
     Active Substance: TREPROSTINIL
     Dosage: UNK
  8. ALBUTEROL [Suspect]
     Active Substance: ALBUTEROL
     Indication: Product used for unknown indication
     Dosage: UNK
     Route: 065
     Dates: start: 202304
  9. ELIQUIS [Concomitant]
     Active Substance: APIXABAN
     Indication: Product used for unknown indication
     Dosage: UNK
     Route: 065

REACTIONS (24)
  - Cough [Unknown]
  - Peripheral swelling [Unknown]
  - Pain in extremity [Unknown]
  - Blood pressure decreased [Unknown]
  - Synovial cyst [Unknown]
  - Erythema [Unknown]
  - Illness [Unknown]
  - Blood uric acid increased [Unknown]
  - Constipation [Recovered/Resolved]
  - Dyspnoea [Recovering/Resolving]
  - Chest discomfort [Unknown]
  - Gait disturbance [Not Recovered/Not Resolved]
  - Bronchospasm [Unknown]
  - Listless [Unknown]
  - Fatigue [Unknown]
  - Decreased appetite [Unknown]
  - Asthenia [Unknown]
  - Feeding disorder [Unknown]
  - Secretion discharge [Unknown]
  - Heart rate increased [Unknown]
  - Fluid retention [Unknown]
  - Oxygen saturation decreased [Unknown]
  - Drug tolerance decreased [Unknown]
  - Intentional product use issue [Unknown]

NARRATIVE: CASE EVENT DATE: 20230401
